FAERS Safety Report 12217494 (Version 1)
Quarter: 2016Q1

REPORT INFORMATION
  Report Type: Spontaneous
  Country: FR (occurrence: FR)
  Receive Date: 20160329
  Receipt Date: 20160329
  Transmission Date: 20160526
  Serious: Yes (Hospitalization)
  Sender: FDA-Public Use
  Company Number: FR-BAXTER-2016BAX013835

PATIENT
  Age: 30 Year
  Sex: Male

DRUGS (26)
  1. ZOPHREN [Concomitant]
     Active Substance: ONDANSETRON
     Indication: PREMEDICATION
     Dosage: D1 AND D5, FOR FIRST COURSE
     Route: 042
     Dates: start: 20150220
  2. POLARAMINE [Concomitant]
     Active Substance: DEXCHLORPHENIRAMINE MALEATE
     Indication: PREMEDICATION
     Dosage: D1 AND D8, INTRA TUBULAR, FOR FIRST COURSE
     Route: 065
     Dates: start: 20150220
  3. UROMITEXAN 400 MG, SOLUTION INJECTABLE IV [Suspect]
     Active Substance: MESNA
     Dosage: INFUSION, CYCLE 2, DAY 1, FIRST DOSE
     Route: 042
     Dates: start: 20150306
  4. DOXORUBICINE [Suspect]
     Active Substance: DOXORUBICIN
     Indication: LYMPHOMA
     Dosage: D1, FIRST COURSE
     Route: 042
     Dates: start: 20150220
  5. METHOTREXATE [Suspect]
     Active Substance: METHOTREXATE
     Indication: LYMPHOMA
     Dosage: D1, FIRST COURSE
     Route: 037
     Dates: start: 20150220
  6. PARACETAMOL [Concomitant]
     Active Substance: ACETAMINOPHEN
     Indication: PREMEDICATION
     Dosage: FOR FIRST CYCLE
     Route: 065
  7. ENDOXAN 1000 MG, POUDRE POUR SOLUTION INJECTABLE [Suspect]
     Active Substance: CYCLOPHOSPHAMIDE
     Dosage: INFUSION, CYCLE 2, D1
     Route: 042
     Dates: start: 20150306
  8. CORTANCYL [Concomitant]
     Active Substance: PREDNISONE
     Indication: PREMEDICATION
     Dosage: D1, D2, D3, D4 AND D5, FOR CYCLE 1
     Route: 048
     Dates: start: 20150220
  9. OBINUTUZUMAB [Suspect]
     Active Substance: OBINUTUZUMAB
     Dosage: INFUSION, CYCLE 2, DAY 1
     Route: 042
     Dates: start: 20150306
  10. DOXORUBICINE [Suspect]
     Active Substance: DOXORUBICIN
     Dosage: INFUSION, CYCLE 2 DAY 1
     Route: 042
     Dates: start: 20150306
  11. UROMITEXAN 600 MG, COMPRIM? [Suspect]
     Active Substance: MESNA
     Indication: PROPHYLAXIS
     Dosage: 2 SUBSEQUENT DOSES IN CYCLE 1
     Route: 048
     Dates: start: 20150220
  12. BLEOMYCIN [Suspect]
     Active Substance: BLEOMYCIN SULFATE
     Indication: LYMPHOMA
     Dosage: D1 AND D8, FIRST COURSE
     Route: 042
     Dates: start: 20150220
  13. ELDISINE [Suspect]
     Active Substance: VINDESINE SULFATE
     Indication: LYMPHOMA
     Dosage: INFUSION, CYCLE 2 DAY 1
     Route: 042
     Dates: start: 20150306, end: 20150311
  14. CYTARABINE. [Suspect]
     Active Substance: CYTARABINE
     Indication: LYMPHOMA
     Dosage: D1, FIRST COURSE
     Route: 037
     Dates: start: 20150220
  15. VINDESINE [Suspect]
     Active Substance: VINDESINE
     Indication: LYMPHOMA
     Dosage: D1 AND D8, FIRST COURSE
     Route: 042
     Dates: start: 20150220
  16. ZOPHREN [Concomitant]
     Active Substance: ONDANSETRON
     Dosage: FOR CYCLE 2
     Route: 065
     Dates: start: 20150306
  17. UROMITEXAN 400 MG, SOLUTION INJECTABLE IV [Suspect]
     Active Substance: MESNA
     Indication: PROPHYLAXIS
     Dosage: FIRST DOSE OF COURSE 1
     Route: 042
     Dates: start: 20150220
  18. UROMITEXAN 400 MG, SOLUTION INJECTABLE IV [Suspect]
     Active Substance: MESNA
     Dosage: INFUSION, THIRD DOSE
     Route: 042
     Dates: start: 20150307
  19. UROMITEXAN 600 MG, COMPRIM? [Suspect]
     Active Substance: MESNA
     Dosage: CYCLE 2, SECOND DOSE
     Route: 048
     Dates: start: 20150307
  20. OBINUTUZUMAB [Suspect]
     Active Substance: OBINUTUZUMAB
     Indication: LYMPHOMA
     Dosage: D1 AND D8, FIRST COURSE
     Route: 042
     Dates: start: 20150220
  21. CORTANCYL [Concomitant]
     Active Substance: PREDNISONE
     Dosage: FOR CYCLE 2
     Route: 065
     Dates: start: 20150306
  22. POLARAMINE [Concomitant]
     Active Substance: DEXCHLORPHENIRAMINE MALEATE
     Dosage: FOR CYCLE 2
     Route: 065
  23. DAFALGAN [Concomitant]
     Active Substance: ACETAMINOPHEN
     Indication: PREMEDICATION
     Dosage: FOR SECOND CYCLE
     Route: 065
  24. ENDOXAN 1000 MG, POUDRE POUR SOLUTION INJECTABLE [Suspect]
     Active Substance: CYCLOPHOSPHAMIDE
     Indication: LYMPHOMA
     Dosage: D1, FIRST COURSE
     Route: 042
     Dates: start: 20150220
  25. BLEOMYCIN [Suspect]
     Active Substance: BLEOMYCIN SULFATE
     Dosage: INFUSION, CYCLE 2 DAY 1
     Route: 042
     Dates: start: 20150306, end: 20150311
  26. DEPO-MEDROL [Concomitant]
     Active Substance: METHYLPREDNISOLONE ACETATE
     Indication: PREMEDICATION
     Dosage: D1, FOR FIRST COURSE
     Route: 037
     Dates: start: 20150220

REACTIONS (3)
  - Dysphagia [Recovered/Resolved]
  - Headache [Unknown]
  - Angioedema [Recovered/Resolved]

NARRATIVE: CASE EVENT DATE: 20150307
